FAERS Safety Report 12634567 (Version 1)
Quarter: 2016Q3

REPORT INFORMATION
  Report Type: Spontaneous
  Country: US (occurrence: None)
  Receive Date: 20160808
  Receipt Date: 20160808
  Transmission Date: 20161109
  Serious: Yes (Hospitalization)
  Sender: FDA-Public Use
  Company Number: None

PATIENT
  Age: 57 Year
  Sex: Female

DRUGS (6)
  1. QUINAPRIL. [Concomitant]
     Active Substance: QUINAPRIL
  2. PLAQUENIL [Concomitant]
     Active Substance: HYDROXYCHLOROQUINE SULFATE
  3. LEXAPRO [Concomitant]
     Active Substance: ESCITALOPRAM OXALATE
  4. ASPIRIN. [Concomitant]
     Active Substance: ASPIRIN
  5. FASLODEX [Concomitant]
     Active Substance: FULVESTRANT
  6. IBRANCE [Suspect]
     Active Substance: PALBOCICLIB
     Indication: BREAST CANCER
     Dosage: 125MG ONCE DAILY FOR 21 DAY THEN BY 7 DAYS OFF ORAL
     Route: 048
     Dates: start: 201605

REACTIONS (1)
  - Lung infection [None]

NARRATIVE: CASE EVENT DATE: 20160729
